FAERS Safety Report 25363112 (Version 1)
Quarter: 2025Q2

REPORT INFORMATION
  Report Type: Report from Study
  Country: AR (occurrence: AR)
  Receive Date: 20250527
  Receipt Date: 20250527
  Transmission Date: 20250717
  Serious: Yes (Other)
  Sender: BAYER HEALTHCARE PHARMACEUTICALS INC.
  Company Number: AR-BAYER-2025A067997

PATIENT
  Age: 72 Year
  Sex: Male

DRUGS (11)
  1. FINERENONE [Suspect]
     Active Substance: FINERENONE
     Indication: Chronic kidney disease
     Dosage: 10 MG, QD
     Dates: start: 20240503, end: 20240701
  2. FINERENONE [Suspect]
     Active Substance: FINERENONE
     Indication: Type 2 diabetes mellitus
     Dosage: 20 MG, QD
     Dates: start: 20240702, end: 20250513
  3. FINERENONE [Suspect]
     Active Substance: FINERENONE
     Indication: Chronic kidney disease
     Dosage: 10 MG, QD
     Dates: start: 20250514
  4. AMLODIPINE [Concomitant]
     Active Substance: AMLODIPINE BESYLATE
     Dates: start: 20120605
  5. LOSARTAN [Concomitant]
     Active Substance: LOSARTAN
  6. CARVEDILOL [Concomitant]
     Active Substance: CARVEDILOL
  7. ALLOPURINOL [Concomitant]
     Active Substance: ALLOPURINOL
  8. ROSUVASTATIN [Concomitant]
     Active Substance: ROSUVASTATIN
  9. LINAGLIPTIN [Concomitant]
     Active Substance: LINAGLIPTIN
     Indication: Type 2 diabetes mellitus
  10. ASPIRIN [Concomitant]
     Active Substance: ASPIRIN
  11. CARBOXYMETHYLCELLULOSE [Concomitant]
     Active Substance: CARBOXYMETHYLCELLULOSE
     Indication: Prophylaxis
     Dates: start: 20240412

REACTIONS (1)
  - Blood creatinine increased [Unknown]

NARRATIVE: CASE EVENT DATE: 20250505
